FAERS Safety Report 4532256-9 (Version None)
Quarter: 2004Q4

REPORT INFORMATION
  Report Type: 
  Country: None (occurrence: None)
  Receive Date: 20041220
  Receipt Date: 20041210
  Transmission Date: 20050328
  Serious: Yes (Other)
  Sender: FDA-Public Use
  Company Number: IN-ABBOTT-04P-078-0282964-00

PATIENT

DRUGS (1)
  1. VALPROATE SODIUM [Suspect]
     Indication: EPILEPSY

REACTIONS (4)
  - DEAFNESS BILATERAL [None]
  - NEUROLEPTIC MALIGNANT SYNDROME [None]
  - PROGRESSIVE SUPRANUCLEAR PALSY [None]
  - UNEVALUABLE EVENT [None]
